FAERS Safety Report 18096309 (Version 3)
Quarter: 2021Q2

REPORT INFORMATION
  Report Type: Spontaneous
  Country: US (occurrence: US)
  Receive Date: 20200730
  Receipt Date: 20210629
  Transmission Date: 20210717
  Serious: Yes (Hospitalization)
  Sender: FDA-Public Use
  Company Number: US-TEVA-2020-US-1806026

PATIENT
  Sex: Female

DRUGS (7)
  1. BLEOMYCIN [Suspect]
     Active Substance: BLEOMYCIN SULFATE
     Indication: OVARIAN GERM CELL TERATOMA
     Dosage: FIRST CHEMOTHERAPY CYCLE: 20 IU/M2 AT 30 WEEKS OF GESTATION; SECOND CYCLE BEGAN AT 33 WEEKS OF GE...
     Route: 064
  2. CISPLATIN. [Suspect]
     Active Substance: CISPLATIN
     Indication: OVARIAN GERM CELL TERATOMA
     Dosage: 20 MG/M2 DAILY; FIRST CHEMOTHERAPY CYCLE : AT 30 WEEKS OF GESTATION; SECOND CYCLE BEGAN AT 33 WEEKS
     Route: 064
  3. INDOMETHACIN. [Suspect]
     Active Substance: INDOMETHACIN
     Indication: PRODUCT USED FOR UNKNOWN INDICATION
     Dosage: 50 MG WAS ADMINISTERED ONE HOUR PRIOR TO SURGERY
     Route: 064
  4. ENOXAPARIN [Suspect]
     Active Substance: ENOXAPARIN
     Indication: THROMBOSIS PROPHYLAXIS
     Route: 064
  5. ETOPOSIDE. [Suspect]
     Active Substance: ETOPOSIDE
     Indication: OVARIAN GERM CELL TERATOMA
     Dosage: 100 MG/M2 DAILY; FIRST CHEMOTHERAPY CYCLE : AT 30 WEEKS OF GESTATION; SECOND CYCLE BEGAN AT 33 WEEKS
     Route: 064
  6. INDOMETHACIN. [Suspect]
     Active Substance: INDOMETHACIN
     Dosage: 100 MILLIGRAM DAILY; 25 MG EVERY SIX HOURS FOR 72 H POSTOPERATIVELY
     Route: 064
  7. BETAMETHASONE. [Suspect]
     Active Substance: BETAMETHASONE
     Indication: PRODUCT USED FOR UNKNOWN INDICATION
     Route: 064

REACTIONS (2)
  - Foetal exposure during pregnancy [Unknown]
  - Low birth weight baby [Recovered/Resolved]
